FAERS Safety Report 4983148-2 (Version None)
Quarter: 2006Q2

REPORT INFORMATION
  Report Type: 
  Country: None (occurrence: None)
  Receive Date: 20060419
  Receipt Date: 20060403
  Transmission Date: 20061013
  Serious: Yes (Hospitalization, Disabling)
  Sender: FDA-Public Use
  Company Number: KR200604000202

PATIENT
  Age: 33 Year
  Sex: Male

DRUGS (2)
  1. HUMALOG [Suspect]
     Indication: DIABETES MELLITUS
     Dosage: 22 U DAILY (1/D)
     Dates: start: 20051101
  2. NOVOLET 30 R CHU (INSULIN HUMAN INJECTION, ISOPHANE) [Concomitant]

REACTIONS (7)
  - BLINDNESS [None]
  - CATARACT [None]
  - EYE DISCHARGE [None]
  - GLAUCOMA [None]
  - PYREXIA [None]
  - THERAPY NON-RESPONDER [None]
  - VISUAL ACUITY REDUCED [None]
